FAERS Safety Report 4540617-7 (Version None)
Quarter: 2004Q4

REPORT INFORMATION
  Report Type: 
  Country: None (occurrence: None)
  Receive Date: 20041222
  Receipt Date: 20041213
  Transmission Date: 20050328
  Serious: Yes (Hospitalization)
  Sender: FDA-Public Use
  Company Number: 2004IM000906

PATIENT
  Age: 37 Year
  Sex: Female

DRUGS (2)
  1. INFERAX (INTERFERON ALFACON-1) [Suspect]
     Indication: HEPATITIS C
     Dosage: 9 UG; QD; SUBCUTANEOUS
     Route: 058
     Dates: start: 20031030
  2. RIBAVIRIN [Suspect]
     Indication: HEPATITIS C
     Dosage: 1000 MG; QD; ORAL
     Route: 048
     Dates: start: 20040202

REACTIONS (6)
  - DEAFNESS UNILATERAL [None]
  - MIGRAINE WITH AURA [None]
  - MITRAL VALVE INCOMPETENCE [None]
  - SCINTILLATING SCOTOMA [None]
  - SPEECH DISORDER [None]
  - TRANSIENT ISCHAEMIC ATTACK [None]
